FAERS Safety Report 4596070-0 (Version None)
Quarter: 2005Q1

REPORT INFORMATION
  Report Type: 
  Country: None (occurrence: None)
  Receive Date: 20050228
  Receipt Date: 20050210
  Transmission Date: 20050727
  Serious: Yes (Other)
  Sender: FDA-Public Use
  Company Number: 212596

PATIENT
  Age: 57 Year
  Sex: Female

DRUGS (7)
  1. HERCEPTIN [Suspect]
     Dosage: INTRAVENOUS
     Route: 042
  2. RAMIPRIL [Concomitant]
  3. METOPROLOL TARTRATE [Concomitant]
  4. ASPIRIN [Concomitant]
  5. CLOPIDOGREL (CLOPIDOGREL BISULFATE) [Concomitant]
  6. ATORVASTATIN (ATORVASTATIN CALICUM) [Concomitant]
  7. POTASSIUM IODIDE (POTASSIUM IODIDE) [Concomitant]

REACTIONS (1)
  - MYOCARDIAL INFARCTION [None]
